FAERS Safety Report 16492841 (Version 6)
Quarter: 2025Q3

REPORT INFORMATION
  Report Type: Spontaneous
  Country: EU (occurrence: EU)
  Receive Date: 20190628
  Receipt Date: 20250812
  Transmission Date: 20251020
  Serious: Yes (Death, Hospitalization, Other)
  Sender: AUROBINDO
  Company Number: EU-AUROBINDO-AUR-APL-2019-036214

PATIENT
  Sex: Male

DRUGS (19)
  1. FLUCONAZOLE [Suspect]
     Active Substance: FLUCONAZOLE
     Indication: Renal cancer
     Route: 065
     Dates: start: 201812
  2. CLARITHROMYCIN [Suspect]
     Active Substance: CLARITHROMYCIN
     Indication: Bronchitis
     Route: 065
     Dates: start: 201812
  3. CLARITHROMYCIN [Suspect]
     Active Substance: CLARITHROMYCIN
     Route: 048
  4. CLARITHROMYCIN [Suspect]
     Active Substance: CLARITHROMYCIN
     Route: 042
  5. SOLU-MEDROL [Suspect]
     Active Substance: METHYLPREDNISOLONE SODIUM SUCCINATE
     Indication: Renal cancer
     Route: 042
  6. SOLU-MEDROL [Suspect]
     Active Substance: METHYLPREDNISOLONE SODIUM SUCCINATE
     Indication: Bronchitis
     Route: 042
     Dates: start: 201812
  7. SOLU-MEDROL [Suspect]
     Active Substance: METHYLPREDNISOLONE SODIUM SUCCINATE
     Route: 042
     Dates: start: 201812
  8. SOLU-MEDROL [Suspect]
     Active Substance: METHYLPREDNISOLONE SODIUM SUCCINATE
     Dosage: 2 MG/KG, BID
     Route: 042
  9. CEFUROXIME [Suspect]
     Active Substance: CEFUROXIME
     Indication: Renal cancer
     Route: 065
     Dates: start: 201812
  10. SULFAMETHOXAZOLE\TRIMETHOPRIM [Suspect]
     Active Substance: SULFAMETHOXAZOLE\TRIMETHOPRIM
     Indication: Renal cancer
     Route: 065
     Dates: start: 201812
  11. ATEZOLIZUMAB [Concomitant]
     Active Substance: ATEZOLIZUMAB
     Indication: Renal cancer
     Route: 065
  12. CABOZANTINIB [Concomitant]
     Active Substance: CABOZANTINIB
     Indication: Renal cancer
     Route: 065
     Dates: start: 2018
  13. CABOZANTINIB [Concomitant]
     Active Substance: CABOZANTINIB
     Route: 065
  14. NIVOLUMAB [Concomitant]
     Active Substance: NIVOLUMAB
     Indication: Renal cancer
     Route: 065
     Dates: start: 201811
  15. SUNITINIB [Concomitant]
     Active Substance: SUNITINIB
     Indication: Renal cancer
     Route: 065
     Dates: start: 201711
  16. SUNITINIB [Concomitant]
     Active Substance: SUNITINIB
     Route: 065
     Dates: start: 20171108
  17. METHYLPREDNISOLONE [Concomitant]
     Active Substance: METHYLPREDNISOLONE
     Indication: Product used for unknown indication
     Route: 065
  18. INFLIXIMAB [Concomitant]
     Active Substance: INFLIXIMAB
     Indication: Paraesthesia
     Route: 041
  19. Immunoglobulins [Concomitant]
     Indication: Product used for unknown indication
     Route: 065
     Dates: start: 20181214

REACTIONS (18)
  - Drug ineffective [Fatal]
  - Death [Fatal]
  - Neurological decompensation [Fatal]
  - Hypotension [Fatal]
  - Muscular weakness [Fatal]
  - Bradycardia [Fatal]
  - Product use in unapproved indication [Unknown]
  - Oxygen saturation decreased [Unknown]
  - Hemiparesis [Not Recovered/Not Resolved]
  - Guillain-Barre syndrome [Unknown]
  - Areflexia [Unknown]
  - Nervous system disorder [Not Recovered/Not Resolved]
  - Paraesthesia [Not Recovered/Not Resolved]
  - General physical health deterioration [Unknown]
  - Dyspnoea [Not Recovered/Not Resolved]
  - Bulbar palsy [Unknown]
  - Behaviour disorder [Not Recovered/Not Resolved]
  - Hyporeflexia [Unknown]

NARRATIVE: CASE EVENT DATE: 20181201
